FAERS Safety Report 16577154 (Version 3)
Quarter: 2020Q1

REPORT INFORMATION
  Report Type: Report from Study
  Country: IT (occurrence: IT)
  Receive Date: 20190716
  Receipt Date: 20200319
  Transmission Date: 20200409
  Serious: Yes (Other)
  Sender: FDA-Public Use
  Company Number: IT-AUROBINDO-AUR-APL-2019-040166

PATIENT
  Sex: Male

DRUGS (2)
  1. PARACETAMOL [Interacting]
     Active Substance: ACETAMINOPHEN
     Indication: SEIZURE
     Dosage: UNK
     Route: 065
  2. LAMOTRIGINE. [Suspect]
     Active Substance: LAMOTRIGINE
     Indication: SEIZURE
     Dosage: UNK
     Route: 065

REACTIONS (5)
  - Drug level decreased [Unknown]
  - Drug interaction [Unknown]
  - Deja vu [Unknown]
  - Focal dyscognitive seizures [Unknown]
  - Toxicity to various agents [Unknown]
